FAERS Safety Report 24379874 (Version 2)
Quarter: 2025Q1

REPORT INFORMATION
  Report Type: Spontaneous
  Country: US (occurrence: US)
  Receive Date: 20240930
  Receipt Date: 20250204
  Transmission Date: 20250409
  Serious: Yes (Other)
  Sender: PFIZER
  Company Number: US-PFIZER INC-202400264957

PATIENT
  Age: 45 Year
  Sex: Female

DRUGS (13)
  1. IBRANCE [Suspect]
     Active Substance: PALBOCICLIB
     Dates: start: 2022
  2. IBRANCE [Suspect]
     Active Substance: PALBOCICLIB
     Route: 048
  3. POTASSIUM [Concomitant]
     Active Substance: POTASSIUM
  4. LUPRON DEPOT [Concomitant]
     Active Substance: LEUPROLIDE ACETATE
  5. CLONAZEPAM [Concomitant]
     Active Substance: CLONAZEPAM
  6. FASLODEX [Concomitant]
     Active Substance: FULVESTRANT
  7. AMITRIPTYLINE HYDROCHLORIDE [Concomitant]
     Active Substance: AMITRIPTYLINE HYDROCHLORIDE
  8. FLUOXETINE HYDROCHLORIDE [Concomitant]
     Active Substance: FLUOXETINE HYDROCHLORIDE
  9. OMEPRAZOLE [Concomitant]
     Active Substance: OMEPRAZOLE
  10. XGEVA [Concomitant]
     Active Substance: DENOSUMAB
  11. COLACE [Concomitant]
     Active Substance: DOCUSATE SODIUM
  12. METOPROLOL SUCCINATE [Concomitant]
     Active Substance: METOPROLOL SUCCINATE
  13. FENTANYL [Concomitant]
     Active Substance: FENTANYL

REACTIONS (10)
  - Neuropathy peripheral [Unknown]
  - Pain in extremity [Unknown]
  - Decreased appetite [Unknown]
  - Weight decreased [Unknown]
  - Fatigue [Unknown]
  - Alopecia [Unknown]
  - Abdominal distension [Unknown]
  - Peripheral swelling [Unknown]
  - Nausea [Unknown]
  - Product dose omission in error [Unknown]
